FAERS Safety Report 5839387-1 (Version None)
Quarter: 2008Q3

REPORT INFORMATION
  Report Type: 
  Country: None (occurrence: None)
  Receive Date: 20080806
  Receipt Date: 20080728
  Transmission Date: 20090109
  Serious: Yes (Death)
  Sender: FDA-Public Use
  Company Number: 10904

PATIENT
  Age: 34 Year
  Sex: Male
  Weight: 49.4421 kg

DRUGS (1)
  1. BLEOMYCIN SULFATE [Suspect]
     Indication: TERATOMA OF TESTIS
     Dosage: 30000 UNITS IV
     Route: 042
     Dates: start: 20040827

REACTIONS (1)
  - SUDDEN DEATH [None]
